FAERS Safety Report 24382279 (Version 2)
Quarter: 2024Q4

REPORT INFORMATION
  Report Type: Spontaneous
  Country: US (occurrence: US)
  Receive Date: 20241001
  Receipt Date: 20241003
  Transmission Date: 20250115
  Serious: Yes (Hospitalization)
  Sender: ABBVIE
  Company Number: US-ABBVIE-5944171

PATIENT
  Age: 77 Year
  Sex: Male

DRUGS (1)
  1. DALBAVANCIN [Suspect]
     Active Substance: DALBAVANCIN
     Indication: Osteomyelitis
     Dosage: TIME INTERVAL: AS NECESSARY
     Route: 065
     Dates: start: 20240402

REACTIONS (11)
  - Neutrophil count abnormal [Recovered/Resolved]
  - Leukocytosis [Recovered/Resolved]
  - Back pain [Recovered/Resolved]
  - Bone pain [Recovered/Resolved]
  - Pain in extremity [Recovered/Resolved]
  - Asthenia [Recovered/Resolved]
  - Tremor [Unknown]
  - Respiratory rate increased [Unknown]
  - Dyspnoea [Unknown]
  - Hypotension [Unknown]
  - Eosinophil count abnormal [Recovered/Resolved]

NARRATIVE: CASE EVENT DATE: 20240101
